FAERS Safety Report 8382993-3 (Version None)
Quarter: 2012Q2

REPORT INFORMATION
  Report Type: 
  Country: None (occurrence: None)
  Receive Date: 20120524
  Receipt Date: 20120522
  Transmission Date: 20120825
  Serious: Yes (Death, Other)
  Sender: FDA-Public Use
  Company Number: PHHY2012BR044203

PATIENT
  Sex: Female
  Weight: 80 kg

DRUGS (1)
  1. EXFORGE [Suspect]
     Indication: HYPERTENSION
     Dosage: 1 DF(320/10MG) EVERY 12 HOURS
     Route: 048

REACTIONS (2)
  - CARTILAGE INJURY [None]
  - PULMONARY EMBOLISM [None]
